FAERS Safety Report 25103045 (Version 1)
Quarter: 2025Q1

REPORT INFORMATION
  Report Type: Spontaneous
  Country: ES (occurrence: ES)
  Receive Date: 20250321
  Receipt Date: 20250321
  Transmission Date: 20250409
  Serious: Yes (Hospitalization)
  Sender: DECIPHERA PHARMACEUTICALS
  Company Number: ES-DECIPHERA PHARMACEUTICALS LLC-2024ES001058

PATIENT
  Age: 78 Year
  Sex: Male

DRUGS (2)
  1. QINLOCK [Suspect]
     Active Substance: RIPRETINIB
     Indication: Gastrointestinal stromal tumour
     Dates: start: 20240531, end: 20240606
  2. QINLOCK [Suspect]
     Active Substance: RIPRETINIB
     Dates: start: 20240607

REACTIONS (3)
  - Malignant neoplasm progression [Unknown]
  - Asthenia [Unknown]
  - Arthralgia [Unknown]

NARRATIVE: CASE EVENT DATE: 20240607
